FAERS Safety Report 5379411-6 (Version None)
Quarter: 2007Q3

REPORT INFORMATION
  Report Type: 
  Country: None (occurrence: None)
  Receive Date: 20070705
  Receipt Date: 20070702
  Transmission Date: 20080115
  Serious: Yes (Hospitalization)
  Sender: FDA-Public Use
  Company Number: US-MERCK-0707USA00324

PATIENT
  Age: 75 Year
  Sex: Female

DRUGS (5)
  1. FOSAMAX [Suspect]
     Route: 048
     Dates: start: 20030101, end: 20060101
  2. SINGULAIR [Concomitant]
     Route: 065
  3. PLAVIX [Concomitant]
     Route: 065
  4. ALBUTEROL [Concomitant]
     Route: 065
  5. [THERAPY UNSPECIFIED] [Concomitant]
     Route: 065

REACTIONS (2)
  - CARDIAC MURMUR [None]
  - CHEST PAIN [None]
